FAERS Safety Report 8246912-2 (Version None)
Quarter: 2012Q1

REPORT INFORMATION
  Report Type: 
  Country: None (occurrence: None)
  Receive Date: 20120330
  Receipt Date: 20120320
  Transmission Date: 20120608
  Serious: Yes (Hospitalization, Other)
  Sender: FDA-Public Use
  Company Number: US-SANOFI-AVENTIS-A03200701697

PATIENT
  Age: 64 Year
  Sex: Male
  Weight: 98.88 kg

DRUGS (30)
  1. NITROGLYCERIN [Concomitant]
     Dates: end: 20040928
  2. COLACE [Concomitant]
     Dates: end: 20040928
  3. FLONASE [Concomitant]
  4. ATENOLOL AND CHLORTHALIDONE [Suspect]
     Indication: CORONARY ARTERY DISEASE
     Dosage: UNIT DOSE: 75 MG
     Route: 048
     Dates: start: 20040904, end: 20050222
  5. ASPIRIN [Suspect]
     Route: 048
     Dates: start: 20040901, end: 20050222
  6. LANOXIN [Concomitant]
  7. CELEXA [Concomitant]
  8. CATAPRES /UNK/ [Concomitant]
  9. CEPHALEXIN [Concomitant]
  10. TRIAMCINOLONE [Concomitant]
  11. ATENOLOL AND CHLORTHALIDONE [Suspect]
     Indication: CORONARY ARTERY BYPASS
     Dosage: UNIT DOSE: 75 MG
     Route: 048
     Dates: start: 20040904, end: 20050222
  12. CLONIDINE [Concomitant]
  13. DILTIAZEM HCL [Concomitant]
  14. DIGOXIN [Concomitant]
  15. ZOCOR [Concomitant]
  16. LORTAB [Concomitant]
  17. HYDROCHLOROTHIAZIDE [Concomitant]
  18. MULTI-VITAMINS [Concomitant]
  19. ATUSS G [Concomitant]
     Indication: COUGH
  20. POTASSIUM CHLORIDE [Concomitant]
     Route: 048
  21. PRILOSEC [Concomitant]
  22. AMOXIL [Concomitant]
     Indication: INFECTION
  23. LABETALOL HCL [Concomitant]
  24. AMIODARONE HCL [Concomitant]
  25. ASPIRIN [Suspect]
  26. ATENOLOL AND CHLORTHALIDONE [Suspect]
     Dosage: UNIT DOSE: 75 MG
     Route: 048
     Dates: start: 20040904, end: 20050222
  27. NITROGLYCERIN [Concomitant]
  28. PREVACID [Concomitant]
  29. ATENOLOL [Concomitant]
  30. PREDNISONE TAB [Concomitant]

REACTIONS (13)
  - CONDITION AGGRAVATED [None]
  - CELLULITIS [None]
  - DERMATITIS [None]
  - COUGH [None]
  - RASH [None]
  - DIZZINESS [None]
  - BLOOD PRESSURE INCREASED [None]
  - ATRIAL FIBRILLATION [None]
  - RHINORRHOEA [None]
  - CEREBRAL HAEMORRHAGE [None]
  - NAUSEA [None]
  - VERTIGO [None]
  - PULMONARY CONGESTION [None]
